FAERS Safety Report 4566819-1 (Version None)
Quarter: 2005Q1

REPORT INFORMATION
  Report Type: 
  Country: None (occurrence: None)
  Receive Date: 20050201
  Receipt Date: 20020418
  Transmission Date: 20050727
  Serious: Yes (Other)
  Sender: FDA-Public Use
  Company Number: US-BRISTOL-MYERS SQUIBB COMPANY-11832557

PATIENT
  Age: 37 Year
  Sex: Female

DRUGS (10)
  1. STADOL [Suspect]
     Route: 045
     Dates: start: 19980406, end: 19990501
  2. STADOL [Suspect]
     Dosage: ROUTE: INJECTION
  3. PREDNISONE [Concomitant]
  4. ALPRAZOLAM [Concomitant]
  5. ALBUTEROL [Concomitant]
  6. HYDROCODONE + ACETAMINOPHEN [Concomitant]
  7. HYDROXYZINE [Concomitant]
  8. PROMETHAZINE [Concomitant]
  9. CLONAZEPAM [Concomitant]
  10. CARISOPRODOL [Concomitant]

REACTIONS (2)
  - DEPENDENCE [None]
  - DRUG WITHDRAWAL SYNDROME [None]
